FAERS Safety Report 5737720-2 (Version None)
Quarter: 2008Q2

REPORT INFORMATION
  Report Type: 
  Country: None (occurrence: None)
  Receive Date: 20080514
  Receipt Date: 20080508
  Transmission Date: 20081010
  Serious: Yes (Other)
  Sender: FDA-Public Use
  Company Number: A0726896A

PATIENT
  Age: 84 Year
  Sex: Female

DRUGS (18)
  1. ADVAIR DISKUS 100/50 [Suspect]
     Indication: WHEEZING
     Route: 055
  2. DOCUSATE [Concomitant]
  3. ISOSORBIDE DINITRATE [Concomitant]
  4. WARFARIN SODIUM [Concomitant]
  5. OYSTER CALCIUM [Concomitant]
  6. REQUIP [Concomitant]
  7. PAROXETINE HCL [Concomitant]
  8. OMEPRAZOLE [Concomitant]
  9. ACTONEL [Concomitant]
  10. CARBIDOPA AND LEVODOPA [Concomitant]
  11. INSULIN [Concomitant]
  12. ASMANEX TWISTHALER [Concomitant]
  13. ALBUTEROL [Concomitant]
  14. IPRATROPIUM BROMIDE [Concomitant]
  15. DIGOXIN [Concomitant]
  16. ASPIRIN [Concomitant]
  17. BENICAR [Concomitant]
  18. FUROSEMIDE [Concomitant]

REACTIONS (4)
  - DRUG HYPERSENSITIVITY [None]
  - DYSPNOEA [None]
  - HALLUCINATION [None]
  - WHEEZING [None]
